FAERS Safety Report 4948460-1 (Version None)
Quarter: 2006Q1

REPORT INFORMATION
  Report Type: 
  Country: None (occurrence: None)
  Receive Date: 20060314
  Receipt Date: 20060308
  Transmission Date: 20060701
  Serious: Yes (Death)
  Sender: FDA-Public Use
  Company Number: TCI2006A00972

PATIENT
  Age: 88 Year
  Sex: Male

DRUGS (11)
  1. LEUPROLIDE ACETATE [Suspect]
     Indication: PROSTATE CANCER
     Dosage: 11.25 MG (11.25 NG 1 UB 12 WK); SUBCUTANEOUS
     Route: 058
     Dates: start: 20050915, end: 20060220
  2. CASODEX [Suspect]
     Dosage: 80 MG (80 MG, 1 IN 1 D) PER ORAL
     Route: 048
     Dates: start: 20050519, end: 20060215
  3. FLIVAS (NAFTOPIDIL) (TABLETS) [Concomitant]
  4. POLLAKISU (OXYBUTYNIN HYDROCHLORIDE) (TABLETS) [Concomitant]
  5. LANIRAPID (METILDOGOXIN) (TABLETS) [Concomitant]
  6. EBASTEL (EBASTINE) (TABLETS) [Concomitant]
  7. ZENBRON (AMBROXOL HYDROCHLORIDE) (PREPARATION FOR ORAL USE (NOS)) [Concomitant]
  8. EXCELASE (EXCELASE) (PREPARATION FOR ORAL USE ( NOS)) [Concomitant]
  9. GASMOTIN (POWDER) [Concomitant]
  10. MAGNESIUM OXIDE (PREPARATION FOR ORAL USE (NOS)) [Concomitant]
  11. MUCODYNE (CARBOCISTEINE) (FINE GRANULES) [Concomitant]

REACTIONS (6)
  - INTERSTITIAL LUNG DISEASE [None]
  - LYMPHOCYTE STIMULATION TEST NEGATIVE [None]
  - MALAISE [None]
  - PNEUMONIA CHLAMYDIAL [None]
  - SPUTUM ABNORMAL [None]
  - THERAPY NON-RESPONDER [None]
